FAERS Safety Report 19449655 (Version 5)
Quarter: 2022Q2

REPORT INFORMATION
  Report Type: Spontaneous
  Country: DE (occurrence: DE)
  Receive Date: 20210622
  Receipt Date: 20220608
  Transmission Date: 20220721
  Serious: Yes (Hospitalization, Disabling, Other)
  Sender: FDA-Public Use
  Company Number: NVSC2021DE134122

PATIENT
  Age: 60 Year
  Sex: Female
  Weight: 63 kg

DRUGS (17)
  1. PANTOPRAZOLE [Suspect]
     Active Substance: PANTOPRAZOLE
     Indication: Abdominal discomfort
     Dosage: 40 MILLIGRAM, QD
     Route: 048
  2. PANTOPRAZOLE [Suspect]
     Active Substance: PANTOPRAZOLE
     Dosage: 40 MILLIGRAM, BID
     Route: 048
  3. PARATHYROID HORMONE [Suspect]
     Active Substance: PARATHYROID HORMONE
     Indication: Hypoparathyroidism
     Dosage: 50 MICROGRAM, QD
     Route: 058
     Dates: start: 20180515
  4. PARATHYROID HORMONE [Suspect]
     Active Substance: PARATHYROID HORMONE
     Dosage: 75 MICROGRAM  DAILY
     Route: 058
     Dates: start: 20180515, end: 20210601
  5. PARATHYROID HORMONE [Suspect]
     Active Substance: PARATHYROID HORMONE
     Dosage: 75 MICROGRAM, QD
     Route: 058
     Dates: start: 20180515, end: 20210812
  6. PARATHYROID HORMONE [Suspect]
     Active Substance: PARATHYROID HORMONE
     Dosage: 75 MICROGRAM, QD
     Route: 058
     Dates: start: 20210812
  7. PARATHYROID HORMONE [Suspect]
     Active Substance: PARATHYROID HORMONE
     Dosage: 50 MICROGRAM, QD
     Route: 058
     Dates: start: 20180515
  8. PARATHYROID HORMONE [Suspect]
     Active Substance: PARATHYROID HORMONE
     Dosage: 50 MICROGRAM, QD
     Route: 058
     Dates: start: 20180515
  9. ARANESP [Concomitant]
     Active Substance: DARBEPOETIN ALFA
     Indication: Product used for unknown indication
     Dosage: 80 MICROGRAM, MONTHLY
     Route: 050
  10. PREDNISOLONE [Concomitant]
     Active Substance: PREDNISOLONE
     Indication: Post procedural complication
     Dosage: 4 MG, QD
     Route: 048
  11. CALCIUM [Concomitant]
     Active Substance: CALCIUM
     Indication: Product used for unknown indication
     Dosage: UNK
     Route: 065
  12. GABAPENTIN [Concomitant]
     Active Substance: GABAPENTIN
     Indication: Pain
     Dosage: 100 MICROGRAM/1-0-1
     Route: 048
  13. RENVELA [Concomitant]
     Active Substance: SEVELAMER CARBONATE
     Indication: Blood phosphorus
     Dosage: 2 DF, TID
     Route: 048
  14. RENVELA [Concomitant]
     Active Substance: SEVELAMER CARBONATE
     Dosage: UNK, TID
     Route: 048
  15. CYCLOSPORINE [Concomitant]
     Active Substance: CYCLOSPORINE
     Indication: Post procedural complication
     Dosage: 60 MILLIGRAM/1-0-1
     Route: 048
  16. BENZBROMARONE [Concomitant]
     Active Substance: BENZBROMARONE
     Indication: Product used for unknown indication
     Dosage: 100 MILLIGRAM, BID
     Route: 048
  17. CELLCEPT [Concomitant]
     Active Substance: MYCOPHENOLATE MOFETIL
     Indication: Post procedural complication
     Dosage: 1000 MG, QD (500 MILLIGRAM/1-0-1 )
     Route: 048

REACTIONS (18)
  - Comminuted fracture [Recovered/Resolved]
  - Muscle rupture [Recovered/Resolved with Sequelae]
  - Pain in extremity [Recovering/Resolving]
  - Renal impairment [Recovered/Resolved]
  - Hypocalcaemia [Recovered/Resolved]
  - Mobility decreased [Recovered/Resolved with Sequelae]
  - Arthralgia [Recovered/Resolved]
  - Cervical vertebral fracture [Not Recovered/Not Resolved]
  - Inflammatory marker increased [Not Recovered/Not Resolved]
  - Paraplegia [Recovered/Resolved with Sequelae]
  - Fall [Not Recovered/Not Resolved]
  - Back pain [Recovered/Resolved]
  - Optic nerve injury [Recovered/Resolved with Sequelae]
  - Gastroenteritis [Recovered/Resolved]
  - Asthenia [Recovered/Resolved]
  - Fatigue [Recovered/Resolved]
  - Blood calcium abnormal [Recovered/Resolved]
  - Product dose omission issue [Recovered/Resolved]

NARRATIVE: CASE EVENT DATE: 20200706
